FAERS Safety Report 4802947-0 (Version None)
Quarter: 2005Q4

REPORT INFORMATION
  Report Type: 
  Country: None (occurrence: None)
  Receive Date: 20051019
  Receipt Date: 20051006
  Transmission Date: 20060501
  Serious: Yes (Life-Threatening, Hospitalization)
  Sender: FDA-Public Use
  Company Number: GB-NOVOPROD-247565

PATIENT
  Age: 58 Year
  Sex: Male
  Weight: 68 kg

DRUGS (7)
  1. LEVEMIR [Suspect]
     Indication: DIABETES MELLITUS INSULIN-DEPENDENT
     Dosage: 12 IU, QD
     Route: 058
     Dates: start: 20050101
  2. RAMIPRIL [Concomitant]
     Dosage: 5 MG, QD
     Route: 048
     Dates: end: 20050921
  3. SPIRONOLAKTON ^ACO^ [Concomitant]
     Dates: end: 20050921
  4. TIOTROPIUM [Concomitant]
     Dosage: 18 UG, QD
     Route: 055
  5. LANSOPRAZOLE [Concomitant]
     Dosage: 30 MG, QD
     Route: 048
  6. PYRIDOXINE HCL [Concomitant]
     Dosage: 50 MG, QD
  7. VITAMIN B COMPLEX CAP [Concomitant]
     Dosage: 1 TAB, QD
     Route: 048

REACTIONS (2)
  - BLOOD POTASSIUM INCREASED [None]
  - HYPERGLYCAEMIA [None]
